FAERS Safety Report 9849360 (Version 1)
Quarter: 2013Q4

REPORT INFORMATION
  Report Type: Spontaneous
  Country: US (occurrence: None)
  Receive Date: 20131223
  Receipt Date: 20131223
  Transmission Date: 20140711
  Serious: Yes (Other)
  Sender: FDA-Public Use
  Company Number: CABO-13003247

PATIENT
  Age: 74 Year
  Sex: Male
  Weight: 69.5 kg

DRUGS (11)
  1. COMETRIQ (CABOZANTINIB) CAPSULE [Suspect]
     Indication: THYROID CANCER
     Route: 048
     Dates: start: 20130827, end: 20130911
  2. CALCIUM 600 + D (CALCIUM CARBONATE, COLECALCIFEROL) [Concomitant]
  3. HYDROCHLOROTHIAZIDE (HYDROCHLOROTHIAZIDE) [Concomitant]
  4. SYNTHROID (LEVOTHYROXINE SODIUM) [Concomitant]
  5. ZANTAC (RANITIDINE HYDROCHLORIDE) [Concomitant]
  6. FLOMAX (MORNIFLUMATE) [Concomitant]
  7. TIMOLOL (TIMOLOL) (NONE) [Concomitant]
  8. ZESTRIL (LISINOPRIL) [Concomitant]
  9. TYLENOL (PARACETAMOL) [Concomitant]
  10. IBUPROFEN (IBUPROFEN) [Concomitant]
  11. CYCLOBENZAPRINE (CYCLOBENZAPRINE) [Concomitant]

REACTIONS (5)
  - Malignant neoplasm progression [None]
  - Arthritis [None]
  - Fatigue [None]
  - Decreased appetite [None]
  - Constipation [None]
